FAERS Safety Report 20210464 (Version 2)
Quarter: 2021Q4

REPORT INFORMATION
  Report Type: Spontaneous
  Country: NL (occurrence: NL)
  Receive Date: 20211221
  Receipt Date: 20211223
  Transmission Date: 20220303
  Serious: Yes (Life-Threatening, Hospitalization)
  Sender: FDA-Public Use
  Company Number: None

PATIENT
  Age: 52 Year
  Sex: Female
  Weight: 65 kg

DRUGS (4)
  1. BLEOMYCIN [Suspect]
     Active Substance: BLEOMYCIN SULFATE
     Indication: Hodgkin^s disease
     Dosage: HAD 2 CURES. LAST DOSE ON MARCH 5, 2021,BLEOMYCIN INJECTION/INFUSION / BRAND NAME NOT SPECIFIED
     Dates: start: 20210122, end: 20210305
  2. VINBLASTINE [Concomitant]
     Active Substance: VINBLASTINE
     Dosage: VINBLASTINE INJECTION/INFUSION / BRAND NAME NOT SPECIFIED
     Dates: start: 20210122, end: 20210305
  3. DOXORUBICIN [Concomitant]
     Active Substance: DOXORUBICIN
     Dosage: DOXORUBICIN INJECTION/INFUSION / BRAND NAME NOT SPECIFIED
     Dates: start: 20210122, end: 20210305
  4. DACARBAZINE [Concomitant]
     Active Substance: DACARBAZINE
     Dosage: DACARBAZINE INJECTION/INFUSION / BRAND NAME NOT SPECIFIED
     Dates: start: 20210122, end: 20210305

REACTIONS (2)
  - Pneumonia [Recovered/Resolved]
  - Pulmonary toxicity [Recovered/Resolved]

NARRATIVE: CASE EVENT DATE: 20210414
